FAERS Safety Report 24196059 (Version 1)
Quarter: 2024Q3

REPORT INFORMATION
  Report Type: Spontaneous
  Country: US (occurrence: None)
  Receive Date: 20240807
  Receipt Date: 20240807
  Transmission Date: 20241017
  Serious: Yes (Death)
  Sender: Public
  Company Number: None

PATIENT
  Age: 78 Year
  Sex: Female
  Weight: 68.8 kg

DRUGS (10)
  1. DULAGLUTIDE [Suspect]
     Active Substance: DULAGLUTIDE
     Indication: Type 2 diabetes mellitus
     Dosage: FREQUENCY : WEEKLY;?
     Route: 058
     Dates: start: 20221010, end: 20240801
  2. TRIAMTERENE AND HYDROCHLOROTHIAZIDE [Concomitant]
     Active Substance: HYDROCHLOROTHIAZIDE\TRIAMTERENE
  3. METFORMIN [Concomitant]
     Active Substance: METFORMIN HYDROCHLORIDE
  4. OMEPRAZOLE [Concomitant]
     Active Substance: OMEPRAZOLE
  5. LISINOPRIL [Concomitant]
     Active Substance: LISINOPRIL
  6. EZETIMIBE [Concomitant]
     Active Substance: EZETIMIBE
  7. FENOFIBRATE [Concomitant]
     Active Substance: FENOFIBRATE
  8. LANTUS [Concomitant]
     Active Substance: INSULIN GLARGINE
  9. BIOTIN [Concomitant]
     Active Substance: BIOTIN
  10. ASPIRIN [Concomitant]
     Active Substance: ASPIRIN

REACTIONS (5)
  - Multiple organ dysfunction syndrome [None]
  - Pancreatitis necrotising [None]
  - Septic shock [None]
  - Hypovolaemia [None]
  - Pancreatitis acute [None]

NARRATIVE: CASE EVENT DATE: 20240801
